FAERS Safety Report 8839004 (Version 1)
Quarter: 2012Q4

REPORT INFORMATION
  Report Type: 
  Country: US (occurrence: None)
  Receive Date: 20121011
  Receipt Date: 20121011
  Transmission Date: 20130627
  Serious: No
  Sender: FDA-Public Use
  Company Number: None

PATIENT
  Age: 53 Year
  Sex: Female

DRUGS (2)
  1. FORTEO [Suspect]
     Dosage: Inject 20MCG subcutaneously every day as directed **expires 28 days after initial entry**
     Route: 058
     Dates: start: 20121008
  2. FORTEO [Suspect]
     Route: 058
     Dates: start: 20121008

REACTIONS (1)
  - Palpitations [None]
